FAERS Safety Report 22331892 (Version 1)
Quarter: 2023Q2

REPORT INFORMATION
  Report Type: Spontaneous
  Country: KR (occurrence: KR)
  Receive Date: 20230517
  Receipt Date: 20230517
  Transmission Date: 20230722
  Serious: Yes (Other)
  Sender: FDA-Public Use
  Company Number: KR-PFIZER INC-202300188456

PATIENT
  Age: 68 Year
  Sex: Female

DRUGS (1)
  1. PAXLOVID [Suspect]
     Active Substance: NIRMATRELVIR\RITONAVIR
     Indication: COVID-19 treatment
     Dosage: UNK
     Route: 048
     Dates: start: 202305

REACTIONS (6)
  - Blood pressure increased [Not Recovered/Not Resolved]
  - Dysgeusia [Not Recovered/Not Resolved]
  - Erythema [Unknown]
  - Feeling hot [Unknown]
  - Dyspnoea [Unknown]
  - Swelling face [Unknown]

NARRATIVE: CASE EVENT DATE: 20230509
